FAERS Safety Report 4331621-2 (Version None)
Quarter: 2004Q2

REPORT INFORMATION
  Report Type: 
  Country: None (occurrence: None)
  Receive Date: 20040405
  Receipt Date: 20040325
  Transmission Date: 20050107
  Serious: Yes (Other)
  Sender: FDA-Public Use
  Company Number: PHBS2004BR04217

PATIENT
  Age: 69 Year
  Sex: Male

DRUGS (3)
  1. METHYLPHENIDATE HCL [Suspect]
     Indication: DEPRESSION
     Dosage: 5 MG/DAY
     Route: 065
  2. METHYLPHENIDATE HCL [Suspect]
     Dosage: 2.5 MG/DAY
     Route: 065
  3. SERTRALINE [Concomitant]
     Indication: DEPRESSION
     Dosage: 50 MG/DAY
     Route: 065

REACTIONS (6)
  - APATHY [None]
  - CONFUSIONAL STATE [None]
  - CRYING [None]
  - HYPERSOMNIA [None]
  - RESPIRATORY DEPRESSION [None]
  - RESPIRATORY FAILURE [None]
